FAERS Safety Report 20775101 (Version 1)
Quarter: 2022Q2

REPORT INFORMATION
  Report Type: Spontaneous
  Country: US (occurrence: US)
  Receive Date: 20220502
  Receipt Date: 20220502
  Transmission Date: 20220721
  Serious: Yes (Death)
  Sender: FDA-Public Use
  Company Number: US-TOLMAR, INC.-22US034262

PATIENT
  Age: 5 Decade
  Sex: Male

DRUGS (5)
  1. ELIGARD [Suspect]
     Active Substance: LEUPROLIDE ACETATE
     Indication: Prostate cancer
     Dosage: UNK
  2. BICALUTAMIDE [Suspect]
     Active Substance: BICALUTAMIDE
     Indication: Prostate cancer
     Dosage: UNK
  3. PEMBROLIZUMAB [Concomitant]
     Active Substance: PEMBROLIZUMAB
     Indication: Bladder cancer
  4. GEMCITABINE [Concomitant]
     Active Substance: GEMCITABINE
     Indication: Chemotherapy
  5. CISPLATIN [Concomitant]
     Active Substance: CISPLATIN
     Indication: Chemotherapy

REACTIONS (4)
  - Malignant neoplasm progression [Fatal]
  - Bladder transitional cell carcinoma metastatic [Fatal]
  - Gait disturbance [Unknown]
  - Fall [Unknown]
